FAERS Safety Report 9115731 (Version 4)
Quarter: 2013Q2

REPORT INFORMATION
  Report Type: Spontaneous
  Country: US (occurrence: US)
  Receive Date: 20130225
  Receipt Date: 20130617
  Transmission Date: 20140414
  Serious: Yes (Death, Other)
  Sender: FDA-Public Use
  Company Number: US-CELGENEUS-163-21880-13022967

PATIENT
  Age: 82 Year
  Sex: Female
  Weight: 67.7 kg

DRUGS (8)
  1. REVLIMID [Suspect]
     Indication: PLASMA CELL MYELOMA
     Dosage: 7.5 MILLIGRAM
     Route: 048
     Dates: start: 20130127, end: 20130129
  2. ALLOPURINOL [Concomitant]
     Indication: GOUT
     Dosage: 100 MILLIGRAM
     Route: 048
     Dates: start: 201207, end: 201302
  3. BACTRIM [Concomitant]
     Indication: ANTIFUNGAL PROPHYLAXIS
     Route: 048
     Dates: start: 201208, end: 201302
  4. DECADRON [Concomitant]
     Indication: PLASMA CELL MYELOMA
     Dates: start: 201208, end: 201301
  5. VELCADE [Concomitant]
     Indication: PLASMA CELL MYELOMA
     Route: 058
     Dates: start: 201208, end: 201301
  6. ACYCLOVIR [Concomitant]
     Indication: ANTIVIRAL PROPHYLAXIS
     Dosage: 400 MILLIGRAM
     Route: 048
     Dates: start: 201208, end: 201302
  7. PLAVIX [Concomitant]
     Indication: MYOCARDIAL INFARCTION
     Dosage: 75 MILLIGRAM
     Route: 048
     Dates: start: 20130115, end: 20130129
  8. ASPIRIN [Concomitant]
     Indication: MYOCARDIAL INFARCTION
     Dosage: 81 MILLIGRAM
     Route: 048
     Dates: start: 20130115, end: 20130129

REACTIONS (6)
  - Plasma cell myeloma [Fatal]
  - Status epilepticus [Fatal]
  - Subdural haematoma [Fatal]
  - Fall [Fatal]
  - Hypoglycaemia [Unknown]
  - Platelet count decreased [Unknown]
